FAERS Safety Report 12842414 (Version 2)
Quarter: 2016Q4

REPORT INFORMATION
  Report Type: Report from Study
  Country: FR (occurrence: FR)
  Receive Date: 20161013
  Receipt Date: 20161123
  Transmission Date: 20170207
  Serious: Yes (Death, Hospitalization)
  Sender: FDA-Public Use
  Company Number: FR-ROCHE-1837318

PATIENT
  Age: 66 Year
  Sex: Female
  Weight: 52 kg

DRUGS (8)
  1. PACLITAXEL. [Suspect]
     Active Substance: PACLITAXEL
     Indication: BREAST CANCER METASTATIC
     Dosage: ON 13/MAY2016 THE MOST RECENT DOSE 144 MG PRIOR TO SAE
     Route: 042
     Dates: start: 20151211
  2. BROMAZEPAM [Concomitant]
     Active Substance: BROMAZEPAM
     Dosage: PER DAY
     Route: 065
     Dates: start: 20160921
  3. DUROGESIC [Concomitant]
     Active Substance: FENTANYL
     Dosage: EVERY 48 HR
     Route: 065
  4. XELODA [Concomitant]
     Active Substance: CAPECITABINE
     Dosage: MORNING?AND EVENING 14 DAYS/21
     Route: 065
     Dates: start: 20160921
  5. VERSATIS [Concomitant]
     Active Substance: LIDOCAINE
     Dosage: PER DAY
     Route: 065
     Dates: start: 20160921
  6. ABSTRAL [Concomitant]
     Active Substance: FENTANYL CITRATE
     Route: 065
     Dates: start: 20160921
  7. BROMAZEPAM [Concomitant]
     Active Substance: BROMAZEPAM
     Dosage: PER DAY
     Route: 065
  8. BEVACIZUMAB [Suspect]
     Active Substance: BEVACIZUMAB
     Indication: BREAST CANCER METASTATIC
     Dosage: ON 21/SEP/2016 THE MOST RECENT DOSE 775 MG PRIOR TO SAE
     Route: 042
     Dates: start: 20151211

REACTIONS (1)
  - Cardiac arrest [Fatal]

NARRATIVE: CASE EVENT DATE: 20160929
